FAERS Safety Report 9133465 (Version 2)
Quarter: 2013Q1

REPORT INFORMATION
  Report Type: Spontaneous
  Country: BR (occurrence: BR)
  Receive Date: 20130116
  Receipt Date: 20130306
  Transmission Date: 20140127
  Serious: Yes (Hospitalization, Other)
  Sender: FDA-Public Use
  Company Number: BR-AMGEN-BRASP2013002684

PATIENT
  Age: 16 Year
  Sex: Female
  Weight: 55 kg

DRUGS (2)
  1. ENBREL [Suspect]
     Indication: JUVENILE IDIOPATHIC ARTHRITIS
     Dosage: 25 MG, ONCE A WEEK
     Route: 058
     Dates: start: 2011, end: 201212
  2. METHOTREXATE [Concomitant]
     Dosage: UNK
     Dates: start: 2011

REACTIONS (2)
  - Juvenile idiopathic arthritis [Unknown]
  - Visual impairment [Unknown]
